FAERS Safety Report 10190197 (Version 2)
Quarter: 2014Q2

REPORT INFORMATION
  Report Type: Spontaneous
  Country: VE (occurrence: VE)
  Receive Date: 20140522
  Receipt Date: 20140522
  Transmission Date: 20141212
  Serious: Yes (Hospitalization)
  Sender: FDA-Public Use
  Company Number: PHHY2014VE045511

PATIENT
  Age: 68 Year
  Sex: Female

DRUGS (6)
  1. DIGOXIN SANDOZ [Suspect]
     Indication: VIRAL CARDIOMYOPATHY
     Dosage: 0.2 MG, UNK
     Route: 048
     Dates: start: 20120615, end: 20140309
  2. CARVEDILOL [Concomitant]
     Dosage: 1.25 MG, UNK
  3. ATORVASTATIN [Concomitant]
     Dosage: 40 MG, UNK
  4. ALDACTONE [Concomitant]
     Dosage: 100 MG, UNK
  5. LASIX [Concomitant]
     Dosage: 40 MG, UNK
  6. COUMADIN [Concomitant]
     Dosage: 5 MG, UNK

REACTIONS (2)
  - Feeling abnormal [Not Recovered/Not Resolved]
  - Cardiac failure [Unknown]
